FAERS Safety Report 5997014-7 (Version None)
Quarter: 2008Q4

REPORT INFORMATION
  Report Type: 
  Country: None (occurrence: None)
  Receive Date: 20081205
  Receipt Date: 20081124
  Transmission Date: 20090506
  Serious: Yes (Other)
  Sender: FDA-Public Use
  Company Number: WAES 0810ESP00026

PATIENT
  Age: 67 Year
  Sex: Male

DRUGS (4)
  1. ZETIA [Suspect]
     Indication: HYPERLIPIDAEMIA
     Dosage: 10 MG/DAILY  PO
     Route: 048
     Dates: start: 20060901
  2. ZOCOR [Suspect]
     Indication: HYPERLIPIDAEMIA
     Dosage: 40 MG/DAILY PO
     Route: 048
     Dates: start: 20060901
  3. HYDRODIURIL [Concomitant]
  4. VALSARTAN [Concomitant]

REACTIONS (1)
  - RETINAL DETACHMENT [None]
